FAERS Safety Report 9332821 (Version 2)
Quarter: 2013Q2

REPORT INFORMATION
  Report Type: Spontaneous
  Country: US (occurrence: US)
  Receive Date: 20130606
  Receipt Date: 20130613
  Transmission Date: 20140414
  Serious: Yes (Death)
  Sender: FDA-Public Use
  Company Number: US-PFIZER INC-2013168317

PATIENT
  Age: 71 Year
  Sex: Male

DRUGS (1)
  1. EMCYT [Suspect]
     Indication: NEOPLASM MALIGNANT
     Dosage: 140 MG, UNK
     Dates: start: 20120614

REACTIONS (2)
  - Disease progression [Fatal]
  - Neoplasm malignant [Fatal]
